FAERS Safety Report 7220007-9 (Version None)
Quarter: 2011Q1

REPORT INFORMATION
  Report Type: 
  Country: None (occurrence: None)
  Receive Date: 20110111
  Receipt Date: 20100525
  Transmission Date: 20110831
  Serious: Yes (Other)
  Sender: FDA-Public Use
  Company Number: US-PFIZER INC-2010069650

PATIENT
  Sex: Male

DRUGS (2)
  1. ALFUZOSIN [Suspect]
     Dosage: UNK
     Route: 048
  2. ATENOLOL [Suspect]
     Dosage: UNK
     Route: 065

REACTIONS (1)
  - PRESYNCOPE [None]
